FAERS Safety Report 9224696 (Version 1)
Quarter: 2013Q2

REPORT INFORMATION
  Report Type: Spontaneous
  Country: US (occurrence: US)
  Receive Date: 20130411
  Receipt Date: 20130411
  Transmission Date: 20140414
  Serious: Yes (Other)
  Sender: FDA-Public Use
  Company Number: US-PFIZER INC-2013113164

PATIENT
  Age: 50 Year
  Sex: Male

DRUGS (1)
  1. DILANTIN [Suspect]
     Dosage: 200 MG, 2X/DAY
     Route: 048

REACTIONS (1)
  - Convulsion [Unknown]
